FAERS Safety Report 7521932-1 (Version None)
Quarter: 2011Q2

REPORT INFORMATION
  Report Type: 
  Country: None (occurrence: None)
  Receive Date: 20110603
  Receipt Date: 20110520
  Transmission Date: 20111010
  Serious: Yes (Hospitalization, Other)
  Sender: FDA-Public Use
  Company Number: US-ELI_LILLY_AND_COMPANY-US201011000658

PATIENT
  Sex: Female
  Weight: 99 kg

DRUGS (26)
  1. FEXOFENADINE [Concomitant]
  2. SIMVASTATIN [Concomitant]
  3. MAGNESIUM SULFATE [Concomitant]
  4. OSCAL D                            /00944201/ [Concomitant]
  5. LOSARTAN POTASSIUM [Concomitant]
  6. TYLENOL                                 /SCH/ [Concomitant]
     Indication: PAIN
  7. MAGNESIUM CHLORIDE [Concomitant]
  8. ELMIRON [Concomitant]
  9. GLYBURIDE [Concomitant]
  10. LASIX [Concomitant]
  11. FORTEO [Suspect]
     Indication: OSTEOPOROSIS
     Dosage: 20 UG, DAILY (1/D)
     Route: 058
     Dates: start: 20101025
  12. WARFARIN SODIUM [Concomitant]
  13. POTASSIUM CHLORIDE [Concomitant]
  14. REGLAN [Concomitant]
  15. PLAVIX [Concomitant]
  16. ALBUTEROL SULFATE AUTOHALER [Concomitant]
     Dosage: UNK, PRN
  17. PHENAZOPYRIDINE HCL TAB [Concomitant]
  18. GLUCOSAMINE [Concomitant]
  19. AMITRIPTYLINE HCL [Concomitant]
  20. PREMARIN [Concomitant]
  21. FORTEO [Suspect]
     Dosage: 20 UG, QD
     Route: 058
  22. ASPIRIN [Concomitant]
  23. CENTRUM SILVER [Concomitant]
  24. METOCLOPRAMIDE [Concomitant]
  25. FORTEO [Suspect]
     Dosage: 20 UG, QD
     Route: 058
  26. PRILOSEC [Concomitant]

REACTIONS (9)
  - BRONCHITIS [None]
  - VOMITING [None]
  - HEADACHE [None]
  - GOUT [None]
  - CYSTITIS INTERSTITIAL [None]
  - ULCER [None]
  - CHEST PAIN [None]
  - PAIN [None]
  - NAUSEA [None]
